FAERS Safety Report 11199897 (Version 1)
Quarter: 2015Q2

REPORT INFORMATION
  Report Type: Spontaneous
  Country: JP (occurrence: JP)
  Receive Date: 20150618
  Receipt Date: 20150618
  Transmission Date: 20150821
  Serious: Yes (Death)
  Sender: FDA-Public Use
  Company Number: JP-PFIZER INC-2015198856

PATIENT
  Age: 66 Year
  Sex: Female

DRUGS (4)
  1. FILGRASTIM [Concomitant]
     Active Substance: FILGRASTIM
     Indication: NEUTROPENIA
  2. VORICONAZOLE. [Suspect]
     Active Substance: VORICONAZOLE
     Indication: FUNGAL INFECTION
     Dosage: 6 MG/KG, 2X/DAY (EVERY 12 H FOR THE FIRST 24 H)
  3. TERBINAFINE [Suspect]
     Active Substance: TERBINAFINE
     Indication: SCEDOSPORIUM INFECTION
     Dosage: 250 MG, 2X/DAY (EVERY 12 H)
  4. VORICONAZOLE. [Suspect]
     Active Substance: VORICONAZOLE
     Indication: SCEDOSPORIUM INFECTION
     Dosage: 4 MG/KG, 2X/DAY (EVERY 12 HOURS THEREAFTER)

REACTIONS (1)
  - Drug ineffective [Fatal]
